FAERS Safety Report 8217455-7 (Version None)
Quarter: 2012Q1

REPORT INFORMATION
  Report Type: 
  Country: None (occurrence: None)
  Receive Date: 20120301
  Receipt Date: 20111213
  Transmission Date: 20120608
  Serious: Yes (Hospitalization)
  Sender: FDA-Public Use
  Company Number: 2011CP000185

PATIENT
  Age: 58 Year
  Sex: Female

DRUGS (6)
  1. TYLENOL W/ CODEINE NO. 3 [Concomitant]
  2. HEPARIN [Concomitant]
  3. KEPPRA [Concomitant]
  4. OFIRMEV [Suspect]
     Indication: PROCEDURAL PAIN
     Dosage: 4 DOSES; TOTAL; IV
     Route: 042
     Dates: start: 20111122
  5. ASCORBIC ACID [Concomitant]
  6. METHENAMINE TAB [Concomitant]

REACTIONS (1)
  - HEPATIC ENZYME INCREASED [None]
